FAERS Safety Report 7934298-X (Version None)
Quarter: 2011Q4

REPORT INFORMATION
  Report Type: 
  Country: None (occurrence: None)
  Receive Date: 20111122
  Receipt Date: 20111114
  Transmission Date: 20120403
  Serious: Yes (Hospitalization, Disabling)
  Sender: FDA-Public Use
  Company Number: US-GLAXOSMITHKLINE-A0937199A

PATIENT
  Age: 59 Year
  Sex: Female

DRUGS (3)
  1. LEVOTHYROXINE SODIUM [Concomitant]
     Dosage: 88MCG PER DAY
  2. ALLI [Suspect]
     Indication: PRODUCT USED FOR UNKNOWN INDICATION
     Route: 065
     Dates: start: 20071001, end: 20090901
  3. IBUPROFEN (ADVIL) [Concomitant]
     Indication: BACK PAIN
     Dosage: 200MG AS REQUIRED

REACTIONS (1)
  - AUTOIMMUNE HEPATITIS [None]
